FAERS Safety Report 9249530 (Version 1)
Quarter: 2013Q2

REPORT INFORMATION
  Report Type: Spontaneous
  Country: US (occurrence: US)
  Receive Date: 20130423
  Receipt Date: 20130423
  Transmission Date: 20140414
  Serious: Yes (Other)
  Sender: FDA-Public Use
  Company Number: CHPA2013US006696

PATIENT
  Age: 44 Year
  Sex: Female

DRUGS (1)
  1. EX-LAX UNKNOWN [Suspect]
     Indication: CONSTIPATION
     Dosage: UNK, UNK, ONCE OR TWICE MONTHLY
     Route: 048

REACTIONS (1)
  - Coeliac disease [Not Recovered/Not Resolved]
